FAERS Safety Report 4604202-0 (Version None)
Quarter: 2005Q2

REPORT INFORMATION
  Report Type: 
  Country: None (occurrence: None)
  Receive Date: 20050214
  Receipt Date: 20041105
  Transmission Date: 20051028
  Serious: No
  Sender: FDA-Public Use
  Company Number: US_0409106113

PATIENT
  Age: 79 Year
  Sex: Male
  Weight: 65 kg

DRUGS (5)
  1. CIALIS [Suspect]
     Indication: ERECTILE DYSFUNCTION
     Dosage: 20 MG AS NEEDED
     Dates: start: 20040201, end: 20041001
  2. LIPITOR [Concomitant]
  3. LISINOPRIL [Concomitant]
  4. UNSPECIFIED BETA-BLOCKER [Concomitant]
  5. DIOVAN [Concomitant]

REACTIONS (1)
  - BLOOD PRESSURE DECREASED [None]
